FAERS Safety Report 8783742 (Version 1)
Quarter: 2012Q4

REPORT INFORMATION
  Report Type: 
  Country: CN (occurrence: CN)
  Receive Date: 20120913
  Receipt Date: 20120913
  Transmission Date: 20130627
  Serious: Yes (Hospitalization)
  Sender: FDA-Public Use
  Company Number: CN-ABBOTT-12P-035-0979035-00

PATIENT
  Age: 57 Year
  Sex: Male

DRUGS (1)
  1. DEPAKINE [Suspect]
     Indication: MENINGIOMA
     Route: 048
     Dates: start: 20111025, end: 20111102

REACTIONS (4)
  - Alanine aminotransferase increased [Unknown]
  - Drug-induced liver injury [Recovering/Resolving]
  - Aspartate aminotransferase increased [Unknown]
  - Decreased appetite [Unknown]
